FAERS Safety Report 18803776 (Version 1)
Quarter: 2021Q1

REPORT INFORMATION
  Report Type: Spontaneous
  Country: US (occurrence: US)
  Receive Date: 20210129
  Receipt Date: 20210129
  Transmission Date: 20210419
  Serious: No
  Sender: FDA-Public Use
  Company Number: US-UCBSA-2020019289

PATIENT
  Age: 47 Year
  Sex: Female
  Weight: 107 kg

DRUGS (1)
  1. KEPPRA [Suspect]
     Active Substance: LEVETIRACETAM
     Indication: SEIZURE
     Dosage: 200 MG AM AND 500 MG PM
     Dates: start: 201503, end: 20150605

REACTIONS (1)
  - No adverse event [Unknown]
